FAERS Safety Report 16431253 (Version 2)
Quarter: 2019Q3

REPORT INFORMATION
  Report Type: Report from Study
  Country: US (occurrence: US)
  Receive Date: 20190614
  Receipt Date: 20190701
  Transmission Date: 20191004
  Serious: Yes (Other)
  Sender: FDA-Public Use
  Company Number: US-PFIZER INC-2019254728

PATIENT
  Age: 47 Year
  Sex: Female

DRUGS (3)
  1. SILICONE OIL [Suspect]
     Active Substance: DIMETHICONE
     Dosage: UNK
  2. METHOTREXATE SODIUM. [Suspect]
     Active Substance: METHOTREXATE SODIUM
     Indication: RETINOPATHY PROLIFERATIVE
     Dosage: 400 ?G/0.1 ML, INTRAVITREAL INJECTION)
  3. POVIDONE-IODINE. [Concomitant]
     Active Substance: POVIDONE-IODINE
     Dosage: UNK

REACTIONS (1)
  - No adverse event [Unknown]
